FAERS Safety Report 9659221 (Version 2)
Quarter: 2014Q1

REPORT INFORMATION
  Report Type: Spontaneous
  Country: AR (occurrence: AR)
  Receive Date: 20131031
  Receipt Date: 20140216
  Transmission Date: 20141002
  Serious: Yes (Hospitalization, Other)
  Sender: FDA-Public Use
  Company Number: AR-AMGEN-ARGSP2013076520

PATIENT
  Age: 77 Year
  Sex: Female

DRUGS (6)
  1. ENBREL [Suspect]
     Indication: PSORIATIC ARTHROPATHY
     Dosage: 50 MG, WEEKLY
     Route: 065
     Dates: start: 20130925
  2. NAPROXEN [Concomitant]
     Dosage: 250 MG, 1X/DAY
  3. METICORTEN [Concomitant]
     Indication: PSORIATIC ARTHROPATHY
     Dosage: 5 MG, 1X/DAY
  4. OMEPRAZOL                          /00661201/ [Concomitant]
     Dosage: UNK
  5. VALSARTAN [Concomitant]
     Dosage: UNK
  6. CALCIUM [Concomitant]
     Dosage: UNK

REACTIONS (6)
  - Renal disorder [Recovering/Resolving]
  - Nephrolithiasis [Unknown]
  - Feeling cold [Recovering/Resolving]
  - Tremor [Recovering/Resolving]
  - Kidney infection [Recovering/Resolving]
  - Urinary tract infection [Recovering/Resolving]
